FAERS Safety Report 9575753 (Version 1)
Quarter: 2013Q4

REPORT INFORMATION
  Report Type: Spontaneous
  Country: US (occurrence: US)
  Receive Date: 20131001
  Receipt Date: 20131001
  Transmission Date: 20140711
  Serious: No
  Sender: FDA-Public Use
  Company Number: US-AMGEN-USASP2012044409

PATIENT
  Age: 52 Year
  Sex: Male
  Weight: 77 kg

DRUGS (5)
  1. PROCRIT [Suspect]
     Indication: HAEMOGLOBIN DECREASED
     Dosage: UNK
     Route: 058
     Dates: start: 201202, end: 201204
  2. PROCRIT [Suspect]
     Dosage: 40 ML, QWK
     Route: 058
     Dates: start: 201206
  3. PEGASYS [Concomitant]
     Indication: HEPATITIS C
     Dosage: UNK
     Route: 058
     Dates: start: 201111
  4. BOCEPREVIR [Concomitant]
     Indication: HEPATITIS C
     Dosage: UNK
     Dates: start: 201111
  5. VICTRELIS [Concomitant]
     Indication: HEPATITIS C
     Dosage: 1500 MG, TID
     Route: 048
     Dates: start: 201111

REACTIONS (2)
  - Incorrect product storage [Not Recovered/Not Resolved]
  - Haemoglobin decreased [Unknown]
